FAERS Safety Report 5449995-8 (Version None)
Quarter: 2007Q3

REPORT INFORMATION
  Report Type: 
  Country: None (occurrence: None)
  Receive Date: 20070912
  Receipt Date: 20070906
  Transmission Date: 20080115
  Serious: Yes (Other)
  Sender: FDA-Public Use
  Company Number: GB-AVENTIS-200717933GDDC

PATIENT

DRUGS (4)
  1. TELFAST                            /01314201/ [Suspect]
  2. PHENYTOIN [Suspect]
  3. PHENOBARBITONE [Suspect]
  4. CHLORPHENIRAMINE TAB [Concomitant]

REACTIONS (2)
  - CONVULSION [None]
  - DRUG INTERACTION [None]
